FAERS Safety Report 13351928 (Version 1)
Quarter: 2017Q1

REPORT INFORMATION
  Report Type: Spontaneous
  Country: US (occurrence: US)
  Receive Date: 20170320
  Receipt Date: 20170320
  Transmission Date: 20170429
  Serious: No
  Sender: FDA-Public Use
  Company Number: US-SA-2016SA192229

PATIENT
  Age: 47 Year
  Sex: Male
  Weight: 74 kg

DRUGS (1)
  1. NASACORT ALLERGY 24HR [Suspect]
     Active Substance: TRIAMCINOLONE ACETONIDE
     Indication: MULTIPLE ALLERGIES
     Dosage: FORM IS SPRAY, DAILY 2 SPRAYS IN EACH NOSTRILS
     Route: 065
     Dates: start: 20160331, end: 20160420

REACTIONS (1)
  - Drug ineffective [Unknown]
